FAERS Safety Report 12174642 (Version 1)
Quarter: 2016Q1

REPORT INFORMATION
  Report Type: Spontaneous
  Country: ES (occurrence: ES)
  Receive Date: 20160313
  Receipt Date: 20160313
  Transmission Date: 20160526
  Serious: Yes (Death, Hospitalization, Other)
  Sender: FDA-Public Use
  Company Number: ES-B.I. PHARMACEUTICALS,INC./RIDGEFIELD-2016-BI-14651ES

PATIENT
  Age: 68 Year
  Sex: Male

DRUGS (4)
  1. MANIDIPINE HYDROCHLORIDE [Concomitant]
     Active Substance: MANIDIPINE HYDROCHLORIDE
     Indication: PRODUCT USED FOR UNKNOWN INDICATION
     Dosage: 20 MG
     Route: 048
     Dates: start: 201411, end: 20150328
  2. MADOPAR [Suspect]
     Active Substance: BENSERAZIDE HYDROCHLORIDE\LEVODOPA
     Indication: PARKINSONISM
     Dosage: 3 ANZ
     Route: 048
     Dates: start: 201411, end: 20150409
  3. MIRAPEXIN [Suspect]
     Active Substance: PRAMIPEXOLE
     Indication: PARKINSONISM
     Dosage: 2.1 MG
     Route: 048
     Dates: start: 201411, end: 20150331
  4. AZILECT [Suspect]
     Active Substance: RASAGILINE MESYLATE
     Indication: PARKINSONISM
     Dosage: 1 MG
     Route: 048
     Dates: start: 201411, end: 20150409

REACTIONS (3)
  - Lower gastrointestinal haemorrhage [Fatal]
  - Drug interaction [Recovered/Resolved]
  - Hallucination [Recovered/Resolved]

NARRATIVE: CASE EVENT DATE: 20150202
